FAERS Safety Report 6024309-3 (Version None)
Quarter: 2008Q4

REPORT INFORMATION
  Report Type: 
  Country: None (occurrence: None)
  Receive Date: 20081231
  Receipt Date: 20081215
  Transmission Date: 20090506
  Serious: Yes (Death, Other)
  Sender: FDA-Public Use
  Company Number: US-PFIZER INC-2008153478

PATIENT
  Age: 55 Year
  Sex: Male

DRUGS (4)
  1. SERTRALINE HCL [Suspect]
  2. DIAZEPAM [Suspect]
  3. TRAMADOL HCL [Suspect]
  4. METHADONE HCL [Suspect]

REACTIONS (10)
  - ARTERIOSCLEROSIS CORONARY ARTERY [None]
  - CARDIAC ARREST [None]
  - CARDIOMEGALY [None]
  - COMPLETED SUICIDE [None]
  - DRUG TOXICITY [None]
  - LEFT VENTRICULAR HYPERTROPHY [None]
  - OEDEMA [None]
  - PULMONARY CONGESTION [None]
  - RESPIRATORY ARREST [None]
  - UNRESPONSIVE TO STIMULI [None]
